FAERS Safety Report 23604666 (Version 1)
Quarter: 2024Q1

REPORT INFORMATION
  Report Type: Spontaneous
  Country: US (occurrence: US)
  Receive Date: 20240307
  Receipt Date: 20240307
  Transmission Date: 20240409
  Serious: No
  Sender: FDA-Public Use
  Company Number: US-009507513-2402USA008022

PATIENT
  Age: 81 Year
  Sex: Male

DRUGS (1)
  1. VERQUVO [Suspect]
     Active Substance: VERICIGUAT
     Indication: Cardiac failure
     Dosage: 2.5 MG, ONCE DAILY
     Route: 048

REACTIONS (1)
  - Blood creatinine increased [Unknown]
